FAERS Safety Report 10101477 (Version 2)
Quarter: 2014Q2

REPORT INFORMATION
  Report Type: Spontaneous
  Country: ES (occurrence: ES)
  Receive Date: 20140424
  Receipt Date: 20140508
  Transmission Date: 20141212
  Serious: Yes (Other)
  Sender: FDA-Public Use
  Company Number: ES-TEVA-476423ISR

PATIENT
  Age: 59 Year
  Sex: Female

DRUGS (1)
  1. LEVOFLOXACIN [Suspect]
     Indication: UPPER RESPIRATORY TRACT INFECTION
     Dosage: 500 MILLIGRAM DAILY; 11 POINTS ON RUCAM SCALE: VERY PROBABLE CAUSAL RELATIONSHIP.
     Route: 048

REACTIONS (1)
  - Autoimmune hepatitis [Recovered/Resolved]
